FAERS Safety Report 7939500-6 (Version None)
Quarter: 2011Q4

REPORT INFORMATION
  Report Type: 
  Country: None (occurrence: None)
  Receive Date: 20111125
  Receipt Date: 20111124
  Transmission Date: 20120403
  Serious: Yes (Hospitalization)
  Sender: FDA-Public Use
  Company Number: CH-BAYER-2011-113108

PATIENT
  Age: 72 Year
  Sex: Male

DRUGS (3)
  1. AMLODIPINE [Concomitant]
     Dosage: UNK
  2. DIOVAN [Concomitant]
     Dosage: UNK
  3. ASPIRIN [Suspect]
     Dosage: 100 MG, QD
     Route: 048
     Dates: end: 20110606

REACTIONS (3)
  - ANAEMIA [None]
  - PRESYNCOPE [None]
  - MELAENA [None]
